FAERS Safety Report 20699095 (Version 5)
Quarter: 2023Q1

REPORT INFORMATION
  Report Type: Spontaneous
  Country: GB (occurrence: GB)
  Receive Date: 20220412
  Receipt Date: 20230331
  Transmission Date: 20230417
  Serious: Yes (Life-Threatening, Hospitalization, Other)
  Sender: FDA-Public Use
  Company Number: GB-PFIZER INC-202200470005

PATIENT
  Age: 80 Year
  Sex: Male

DRUGS (17)
  1. FUROSEMIDE [Suspect]
     Active Substance: FUROSEMIDE
     Indication: Cardiac failure
     Dosage: 40 MILLIGRAM, ONCE A DAY
     Route: 048
     Dates: start: 2017
  2. RAMIPRIL [Suspect]
     Active Substance: RAMIPRIL
     Indication: Coronary artery disease
     Dosage: 5 MILLIGRAM, ONCE A DAY
     Route: 048
     Dates: start: 202008, end: 20210906
  3. PFIZER-BIONTECH COVID-19 VACCINE [Suspect]
     Active Substance: TOZINAMERAN
     Indication: Product used for unknown indication
     Dosage: UNK
     Route: 065
     Dates: start: 20210117
  4. PFIZER-BIONTECH COVID-19 VACCINE [Suspect]
     Active Substance: TOZINAMERAN
     Dosage: UNK
     Route: 065
     Dates: start: 20210402
  5. ALLOPURINOL [Concomitant]
     Active Substance: ALLOPURINOL
     Indication: Gout
     Dosage: 100 MILLIGRAM, ONCE A DAY
     Route: 048
     Dates: start: 202008
  6. ATORVASTATIN [Concomitant]
     Active Substance: ATORVASTATIN
     Indication: Hypercholesterolaemia
     Dosage: 80 MILLIGRAM, ONCE A DAY
     Route: 048
     Dates: start: 2012
  7. ATORVASTATIN [Concomitant]
     Active Substance: ATORVASTATIN
     Indication: Coronary artery disease
  8. TOZINAMERAN [Concomitant]
     Active Substance: TOZINAMERAN
     Indication: COVID-19 immunisation
     Dosage: UNK ONCE TOTAL (DOSE 1, SINGLE)
     Route: 065
     Dates: start: 20210117, end: 20210117
  9. TOZINAMERAN [Concomitant]
     Active Substance: TOZINAMERAN
     Dosage: UNK ONCE TOTAL (DOSE 2, SINGLE)
     Route: 065
     Dates: start: 20210402
  10. EDOXABAN [Concomitant]
     Active Substance: EDOXABAN
     Indication: Atrial fibrillation
     Dosage: 30 MILLIGRAM, ONCE A DAY
     Route: 048
     Dates: start: 202008
  11. ENOXAPARIN [Concomitant]
     Active Substance: ENOXAPARIN
     Indication: Product used for unknown indication
     Dosage: 120 MILLIGRAM, ONCE A DAY
     Route: 065
  12. EPLERENONE [Concomitant]
     Active Substance: EPLERENONE
     Indication: Product used for unknown indication
     Dosage: UNK
     Route: 065
  13. LEVOTHYROXINE [Concomitant]
     Active Substance: LEVOTHYROXINE
     Indication: Hypothyroidism
     Dosage: 50 MICROGRAM, ONCE A DAY
     Route: 048
     Dates: start: 2017
  14. LOPERAMIDE [Concomitant]
     Active Substance: LOPERAMIDE
     Indication: Gastrointestinal stoma complication
     Dosage: 16 MILLIGRAM, ONCE A DAY
     Route: 048
     Dates: start: 2021
  15. LOPERAMIDE [Concomitant]
     Active Substance: LOPERAMIDE
     Indication: Diarrhoea
  16. SOTALOL [Concomitant]
     Active Substance: SOTALOL
     Indication: Atrial fibrillation
     Dosage: 160 MILLIGRAM, ONCE A DAY
     Route: 048
     Dates: start: 202008
  17. UREA [Concomitant]
     Active Substance: UREA
     Indication: Product used for unknown indication
     Dosage: UNK
     Route: 065

REACTIONS (21)
  - Acute kidney injury [Recovered/Resolved with Sequelae]
  - Small intestinal obstruction [Recovered/Resolved]
  - Dysuria [Recovered/Resolved]
  - Pollakiuria [Recovered/Resolved]
  - Penile pain [Recovered/Resolved]
  - Colorectal cancer [Recovered/Resolved]
  - Circulatory collapse [Recovered/Resolved]
  - Bladder dilatation [Not Recovered/Not Resolved]
  - Adhesion [Not Recovered/Not Resolved]
  - Sepsis [Not Recovered/Not Resolved]
  - Urosepsis [Recovered/Resolved]
  - Ileus [Not Recovered/Not Resolved]
  - Gastric dilatation [Not Recovered/Not Resolved]
  - Urinary tract obstruction [Recovered/Resolved]
  - Thrombosis [Recovered/Resolved]
  - Vomiting [Recovered/Resolved]
  - Gastrointestinal stoma output decreased [Recovered/Resolved]
  - Dyspnoea [Recovered/Resolved]
  - Ejection fraction [Recovered/Resolved]
  - Cardiac amyloidosis [Unknown]
  - Dehydration [Recovered/Resolved]

NARRATIVE: CASE EVENT DATE: 20210905
